FAERS Safety Report 9544791 (Version 1)
Quarter: 2013Q3

REPORT INFORMATION
  Report Type: Spontaneous
  Country: US (occurrence: US)
  Receive Date: 20130923
  Receipt Date: 20130923
  Transmission Date: 20140515
  Serious: No
  Sender: FDA-Public Use
  Company Number: US-GLAXOSMITHKLINE-A0999163A

PATIENT
  Age: 58 Year
  Sex: Male

DRUGS (5)
  1. ABREVA [Suspect]
     Indication: ORAL HERPES
     Dates: start: 20121029, end: 20121029
  2. BLOOD PRESSURE MEDICATION [Suspect]
  3. HEART MEDICATION [Suspect]
  4. UNKNOWN MEDICATION [Suspect]
     Indication: LIVER DISORDER
  5. UNSPECIFIED MEDICATIONS [Concomitant]

REACTIONS (1)
  - Application site swelling [Not Recovered/Not Resolved]
